FAERS Safety Report 8555605-3 (Version None)
Quarter: 2012Q3

REPORT INFORMATION
  Report Type: 
  Country: None (occurrence: None)
  Receive Date: 20120731
  Receipt Date: 20120625
  Transmission Date: 20120928
  Serious: No
  Sender: FDA-Public Use
  Company Number: US-ASTRAZENECA-2010SE56800

PATIENT
  Age: 51 Year
  Sex: Female
  Weight: 59 kg

DRUGS (6)
  1. SEROQUEL XR [Suspect]
     Indication: INSOMNIA
     Route: 048
     Dates: start: 20090101
  2. SEROQUEL XR [Suspect]
     Route: 048
  3. SEROQUEL XR [Suspect]
     Indication: DEPRESSION
     Route: 048
     Dates: start: 20090101
  4. SEROQUEL XR [Suspect]
     Route: 048
  5. SEROQUEL XR [Suspect]
     Indication: CONVULSION
     Route: 048
     Dates: start: 20090101
  6. SEROQUEL XR [Suspect]
     Route: 048

REACTIONS (7)
  - NAUSEA [None]
  - INSOMNIA [None]
  - FEELING ABNORMAL [None]
  - DRUG DOSE OMISSION [None]
  - ASTHENIA [None]
  - HEADACHE [None]
  - MALAISE [None]
